FAERS Safety Report 7862170-2 (Version None)
Quarter: 2011Q4

REPORT INFORMATION
  Report Type: 
  Country: None (occurrence: None)
  Receive Date: 20111027
  Receipt Date: 20101103
  Transmission Date: 20120403
  Serious: No
  Sender: FDA-Public Use
  Company Number: US-AMGEN-USASP2010003104

PATIENT
  Sex: Female

DRUGS (2)
  1. METHOTREXATE [Concomitant]
     Dosage: 7 MG, QWK
     Dates: start: 20060101
  2. ENBREL [Suspect]
     Indication: RHEUMATOID ARTHRITIS
     Dosage: 50 MG, QWK
     Dates: start: 20070701

REACTIONS (1)
  - RASH [None]
